FAERS Safety Report 24064217 (Version 2)
Quarter: 2024Q4

REPORT INFORMATION
  Report Type: Spontaneous
  Country: JP (occurrence: JP)
  Receive Date: 20240709
  Receipt Date: 20241007
  Transmission Date: 20250115
  Serious: Yes (Death, Other)
  Sender: NOVARTIS
  Company Number: JP-002147023-NVSJ2024JP005602

PATIENT
  Sex: Male

DRUGS (2)
  1. TAFINLAR [Suspect]
     Active Substance: DABRAFENIB MESYLATE
     Indication: Anaplastic thyroid cancer
     Dosage: 150 MG, BID
     Route: 048
     Dates: start: 202312
  2. MEKINIST [Suspect]
     Active Substance: TRAMETINIB DIMETHYL SULFOXIDE
     Indication: Anaplastic thyroid cancer
     Dosage: 2 MG, QD
     Route: 048
     Dates: start: 202312

REACTIONS (4)
  - Death [Fatal]
  - Hemiparesis [Unknown]
  - Cerebral haemorrhage [Unknown]
  - Blood albumin decreased [Unknown]

NARRATIVE: CASE EVENT DATE: 20240401
